FAERS Safety Report 15764840 (Version 10)
Quarter: 2019Q2

REPORT INFORMATION
  Report Type: Spontaneous
  Country: US (occurrence: US)
  Receive Date: 20181227
  Receipt Date: 20190626
  Transmission Date: 20190711
  Serious: Yes (Congenital Anomaly, Other)
  Sender: FDA-Public Use
  Company Number: PHEH2018US054778

PATIENT
  Sex: Female

DRUGS (6)
  1. ONDANSETRON DR REDDY [Suspect]
     Active Substance: ONDANSETRON
     Indication: FOETAL EXPOSURE DURING PREGNANCY
     Dosage: MOTHER DOSE: 8 MG, UNK
     Route: 064
  2. ONDANSETRON [Suspect]
     Active Substance: ONDANSETRON
     Indication: FOETAL EXPOSURE DURING PREGNANCY
     Dosage: MOTHER DOSE: 8 MG, UNK
     Route: 064
  3. ZOFRAN ODT [Suspect]
     Active Substance: ONDANSETRON HYDROCHLORIDE
     Indication: FOETAL EXPOSURE DURING PREGNANCY
     Route: 064
  4. ZOFRAN [Suspect]
     Active Substance: ONDANSETRON HYDROCHLORIDE
     Indication: FOETAL EXPOSURE DURING PREGNANCY
     Route: 064
  5. ONDANSETRON [Suspect]
     Active Substance: ONDANSETRON
     Indication: FOETAL EXPOSURE DURING PREGNANCY
     Dosage: MOTHER DOSE: 4 MG, UNK
     Route: 064
  6. ZOFRAN [Suspect]
     Active Substance: ONDANSETRON HYDROCHLORIDE
     Indication: FOETAL EXPOSURE DURING PREGNANCY
     Route: 064

REACTIONS (33)
  - Pulmonary artery stenosis congenital [Unknown]
  - Left-to-right cardiac shunt [Unknown]
  - Speech disorder [Unknown]
  - Foetal growth restriction [Unknown]
  - Gait disturbance [Unknown]
  - Cor triatriatum [Unknown]
  - Cardiac murmur [Unknown]
  - Insomnia [Unknown]
  - Sleep terror [Unknown]
  - Diarrhoea [Unknown]
  - Upper respiratory tract infection [Unknown]
  - Ventricular hypertrophy [Unknown]
  - Drug withdrawal syndrome neonatal [Unknown]
  - Sleep disorder [Unknown]
  - Snoring [Unknown]
  - Foetal exposure during pregnancy [Unknown]
  - Feeding disorder [Unknown]
  - Sleep apnoea syndrome [Unknown]
  - Heart valve stenosis [Unknown]
  - Umbilical hernia [Unknown]
  - Tonsillar hypertrophy [Unknown]
  - Poor quality sleep [Unknown]
  - Sensory processing disorder [Unknown]
  - Atrial septal defect [Unknown]
  - Injury [Unknown]
  - Asthma [Unknown]
  - Toe walking [Unknown]
  - Right ventricular hypertrophy [Unknown]
  - Bruxism [Unknown]
  - Fall [Unknown]
  - Laevocardia [Unknown]
  - Developmental delay [Unknown]
  - Attention deficit/hyperactivity disorder [Unknown]
